FAERS Safety Report 6945599-6 (Version None)
Quarter: 2010Q3

REPORT INFORMATION
  Report Type: 
  Country: None (occurrence: None)
  Receive Date: 20100819
  Receipt Date: 20100806
  Transmission Date: 20110219
  Serious: Yes (Hospitalization)
  Sender: FDA-Public Use
  Company Number: 2010SP002210

PATIENT
  Age: 56 Year
  Sex: Female
  Weight: 86.2 kg

DRUGS (14)
  1. XOPENEX [Suspect]
     Indication: ASTHMA
     Dosage: 1.25 MG/3ML; TID; INHALATION
     Route: 055
  2. PREDNISONE [Concomitant]
  3. SINGULAIR [Concomitant]
  4. FEXOFENADINE HCL [Concomitant]
  5. LASIX [Concomitant]
  6. LISINOPRIL [Concomitant]
  7. THYROID [Concomitant]
  8. SIMVASTATIN [Concomitant]
  9. PREVACID [Concomitant]
  10. PLAVIX [Concomitant]
  11. NASONEX [Concomitant]
  12. METOPROLOL TARTRATE [Concomitant]
  13. IRON [Concomitant]
  14. POTASSIUM [Concomitant]

REACTIONS (5)
  - AORTIC VALVE INCOMPETENCE [None]
  - ASTHMA [None]
  - CARDIAC FAILURE CONGESTIVE [None]
  - URTICARIA [None]
  - VERTIGO [None]
